FAERS Safety Report 25971367 (Version 3)
Quarter: 2025Q4

REPORT INFORMATION
  Report Type: Spontaneous
  Country: US (occurrence: US)
  Receive Date: 20251028
  Receipt Date: 20251121
  Transmission Date: 20260118
  Serious: No
  Sender: JOHNSON AND JOHNSON
  Company Number: US-JNJFOC-20251013784

PATIENT
  Age: 65 Year
  Sex: Female

DRUGS (2)
  1. GUSELKUMAB [Suspect]
     Active Substance: GUSELKUMAB
     Indication: Rheumatoid arthritis
     Route: 065
  2. GUSELKUMAB [Suspect]
     Active Substance: GUSELKUMAB
     Indication: Pustular psoriasis

REACTIONS (2)
  - Device issue [Unknown]
  - Product dose omission issue [Unknown]

NARRATIVE: CASE EVENT DATE: 20251010
